FAERS Safety Report 13959841 (Version 4)
Quarter: 2019Q1

REPORT INFORMATION
  Report Type: Spontaneous
  Country: US (occurrence: US)
  Receive Date: 20170911
  Receipt Date: 20190213
  Transmission Date: 20190417
  Serious: Yes (Hospitalization, Other)
  Sender: FDA-Public Use
  Company Number: US-DSJP-DSU-2017-136581

PATIENT

DRUGS (2)
  1. BENICAR [Suspect]
     Active Substance: OLMESARTAN MEDOXOMIL
     Dosage: 40 MG, QD
     Route: 048
     Dates: start: 20070504, end: 20170824
  2. BENICAR [Suspect]
     Active Substance: OLMESARTAN MEDOXOMIL
     Indication: BLOOD PRESSURE MANAGEMENT
     Dosage: 20 MG, QD
     Dates: start: 20070418

REACTIONS (7)
  - Gastrooesophageal reflux disease [Unknown]
  - Cholecystitis acute [Recovered/Resolved]
  - Sprue-like enteropathy [Recovering/Resolving]
  - Ulcer [Unknown]
  - Pancreatitis [Unknown]
  - Large intestine polyp [Unknown]
  - Hepatitis [Unknown]

NARRATIVE: CASE EVENT DATE: 20100315
